FAERS Safety Report 5676453-8 (Version None)
Quarter: 2008Q1

REPORT INFORMATION
  Report Type: 
  Country: None (occurrence: None)
  Receive Date: 20080321
  Receipt Date: 20080319
  Transmission Date: 20080703
  Serious: Yes (Disabling)
  Sender: FDA-Public Use
  Company Number: US-BRISTOL-MYERS SQUIBB COMPANY-13957055

PATIENT
  Age: 63 Year
  Sex: Male

DRUGS (3)
  1. SPRYCEL [Suspect]
     Indication: CHRONIC MYELOID LEUKAEMIA
     Route: 048
     Dates: start: 20070501
  2. NIFEREX [Concomitant]
  3. MOTRIN [Concomitant]

REACTIONS (3)
  - ALTERED VISUAL DEPTH PERCEPTION [None]
  - VISUAL DISTURBANCE [None]
  - VISUAL FIELD DEFECT [None]
